FAERS Safety Report 7940359-1 (Version None)
Quarter: 2011Q4

REPORT INFORMATION
  Report Type: 
  Country: None (occurrence: None)
  Receive Date: 20111127
  Receipt Date: 20111115
  Transmission Date: 20120403
  Serious: Yes (Hospitalization, Other)
  Sender: FDA-Public Use
  Company Number: US-ELI_LILLY_AND_COMPANY-US201007001024

PATIENT
  Sex: Female

DRUGS (17)
  1. CALCIUM WITH VITAMIN D [Concomitant]
  2. VITAMIN D [Concomitant]
  3. FORTEO [Suspect]
     Indication: OSTEOPOROSIS
     Dosage: 20 UG, DAILY (1/D)
     Route: 058
     Dates: start: 20100325
  4. IRON [Concomitant]
     Indication: MINERAL SUPPLEMENTATION
  5. SIMVASTATIN [Concomitant]
     Indication: BLOOD CHOLESTEROL
  6. PRILOSEC [Concomitant]
  7. FORTEO [Suspect]
     Dosage: 20 UG, QD
     Route: 058
  8. ASPIRIN [Concomitant]
  9. CALCIUM [Concomitant]
  10. CELEBREX [Concomitant]
     Indication: PAIN
  11. POTASSIUM ACETATE [Concomitant]
     Indication: MINERAL SUPPLEMENTATION
  12. MAGNESIUM SULFATE [Concomitant]
     Indication: MINERAL SUPPLEMENTATION
  13. FORTEO [Suspect]
     Dosage: 20 UG, DAILY (1/D)
     Route: 058
     Dates: start: 20100325
  14. LISINOPRIL [Concomitant]
  15. VITAMIN E [Concomitant]
  16. GLUCOSAMINE W/CHONDROITIN [Concomitant]
  17. LIPITOR [Concomitant]

REACTIONS (16)
  - BLOOD PRESSURE INCREASED [None]
  - BACK PAIN [None]
  - UNRESPONSIVE TO STIMULI [None]
  - ARTHRALGIA [None]
  - BLOOD IRON DECREASED [None]
  - CARDIAC ENZYMES INCREASED [None]
  - SYNCOPE [None]
  - INSOMNIA [None]
  - DRUG DOSE OMISSION [None]
  - LOSS OF CONSCIOUSNESS [None]
  - BLOOD PRESSURE DECREASED [None]
  - DEHYDRATION [None]
  - MALAISE [None]
  - BLOOD MAGNESIUM DECREASED [None]
  - PALPITATIONS [None]
  - BLOOD POTASSIUM DECREASED [None]
